FAERS Safety Report 20819478 (Version 1)
Quarter: 2022Q2

REPORT INFORMATION
  Report Type: Spontaneous
  Country: US (occurrence: US)
  Receive Date: 20220512
  Receipt Date: 20220512
  Transmission Date: 20220720
  Serious: No
  Sender: FDA-Public Use
  Company Number: US-BAUSCH-BL-2022-011341

PATIENT
  Sex: Male

DRUGS (3)
  1. LUMIFY [Suspect]
     Active Substance: BRIMONIDINE TARTRATE
     Indication: Eye colour change
     Dosage: 1 DROP IN EACH EYE ONE TIME,
     Route: 047
     Dates: start: 20220505, end: 20220505
  2. LUMIFY [Suspect]
     Active Substance: BRIMONIDINE TARTRATE
  3. DORZOLAMIDE [Concomitant]
     Active Substance: DORZOLAMIDE
     Indication: Erythema
     Route: 047

REACTIONS (1)
  - Instillation site erythema [Recovering/Resolving]

NARRATIVE: CASE EVENT DATE: 20220505
